FAERS Safety Report 12071109 (Version 4)
Quarter: 2016Q3

REPORT INFORMATION
  Report Type: Spontaneous
  Country: US (occurrence: US)
  Receive Date: 20160211
  Receipt Date: 20160718
  Transmission Date: 20161109
  Serious: Yes (Hospitalization, Other)
  Sender: FDA-Public Use
  Company Number: US-ELI_LILLY_AND_COMPANY-US201602000502

PATIENT
  Age: 25 Year
  Sex: Male
  Weight: 113.83 kg

DRUGS (1)
  1. TRULICITY [Suspect]
     Active Substance: DULAGLUTIDE
     Indication: TYPE 2 DIABETES MELLITUS
     Dosage: 0.75 MG, UNKNOWN
     Route: 058
     Dates: start: 20160129

REACTIONS (5)
  - Dehydration [Recovered/Resolved]
  - Vomiting [Recovered/Resolved]
  - Diabetic ketoacidosis [Recovered/Resolved]
  - Off label use [Unknown]
  - Nausea [Recovered/Resolved]

NARRATIVE: CASE EVENT DATE: 20160129
